FAERS Safety Report 17062931 (Version 1)
Quarter: 2019Q4

REPORT INFORMATION
  Report Type: Spontaneous
  Country: GB (occurrence: GB)
  Receive Date: 20191122
  Receipt Date: 20191122
  Transmission Date: 20200122
  Serious: Yes (Other)
  Sender: FDA-Public Use
  Company Number: GB-SUN PHARMACEUTICAL INDUSTRIES LTD-2019RR-228637

PATIENT
  Age: 59 Year
  Sex: Male
  Weight: 99 kg

DRUGS (1)
  1. ROSUVASTATIN. [Suspect]
     Active Substance: ROSUVASTATIN
     Indication: PRODUCT USED FOR UNKNOWN INDICATION
     Dosage: 5 MILLIGRAM, UNK
     Route: 048
     Dates: start: 20190601, end: 20190906

REACTIONS (7)
  - Myalgia [Unknown]
  - Asthenia [Recovered/Resolved]
  - Amnesia [Unknown]
  - Muscle injury [Recovered/Resolved]
  - Disturbance in attention [Unknown]
  - Arthralgia [Recovered/Resolved]
  - Chromaturia [Unknown]

NARRATIVE: CASE EVENT DATE: 20190810
